FAERS Safety Report 4524956-1 (Version None)
Quarter: 2004Q4

REPORT INFORMATION
  Report Type: 
  Country: None (occurrence: None)
  Receive Date: 20041213
  Receipt Date: 20041203
  Transmission Date: 20050328
  Serious: Yes (Hospitalization)
  Sender: FDA-Public Use
  Company Number: US-AMGEN-US102285

PATIENT
  Sex: Male

DRUGS (3)
  1. ENBREL [Suspect]
     Indication: THROMBOCYTOPENIC PURPURA
     Route: 058
     Dates: start: 20041007, end: 20041202
  2. PREDNISONE [Concomitant]
     Dates: start: 20041202
  3. FOLATE SODIUM [Concomitant]
     Dates: start: 20041202

REACTIONS (1)
  - ANAEMIA [None]
